FAERS Safety Report 7571755-2 (Version None)
Quarter: 2011Q2

REPORT INFORMATION
  Report Type: 
  Country: None (occurrence: None)
  Receive Date: 20110624
  Receipt Date: 20110615
  Transmission Date: 20111010
  Serious: Yes (Hospitalization, Other)
  Sender: FDA-Public Use
  Company Number: JP-CEPHALON-2011000660

PATIENT
  Sex: Female
  Weight: 83 kg

DRUGS (9)
  1. BENDAMUSTINE HCL [Suspect]
     Route: 042
     Dates: start: 20110203
  2. PALONOSETRON [Suspect]
     Route: 042
     Dates: start: 20110203, end: 20110204
  3. SULFAMETHOXAZOLE AND TRIMETHOPRIM [Suspect]
     Route: 048
     Dates: start: 20110111
  4. FAMOTIDINE [Concomitant]
     Dates: start: 20110111
  5. PRAVASTATIN SODIUM [Concomitant]
     Dates: start: 20110111
  6. ALLOPURINOL [Concomitant]
     Dates: start: 20090110
  7. POTASSIUM CITRATE W/SODIUM CITRATE [Concomitant]
     Dates: start: 20110111
  8. AMLODIPINE BESYLATE [Concomitant]
     Dates: start: 20090610
  9. BENDAMUSTINE HCL [Suspect]
     Indication: NON-HODGKIN'S LYMPHOMA RECURRENT
     Route: 042
     Dates: start: 20110113, end: 20110114

REACTIONS (5)
  - RASH [None]
  - PANCYTOPENIA [None]
  - CHILLS [None]
  - C-REACTIVE PROTEIN INCREASED [None]
  - PYREXIA [None]
